FAERS Safety Report 12070466 (Version 1)
Quarter: 2016Q1

REPORT INFORMATION
  Report Type: Other
  Country: US (occurrence: US)
  Receive Date: 20160211
  Receipt Date: 20160211
  Transmission Date: 20160526
  Serious: No
  Sender: FDA-Public Use
  Company Number: US-BRECKENRIDGE PHARMACEUTICAL, INC.-1047705

PATIENT
  Sex: Female

DRUGS (1)
  1. DULOXETINE. [Suspect]
     Active Substance: DULOXETINE

REACTIONS (5)
  - Product substitution issue [None]
  - Drug ineffective [Recovered/Resolved]
  - Mood altered [None]
  - Pain [None]
  - Neuralgia [None]
